FAERS Safety Report 12850814 (Version 1)
Quarter: 2016Q4

REPORT INFORMATION
  Report Type: Spontaneous
  Country: US (occurrence: US)
  Receive Date: 20161014
  Receipt Date: 20161014
  Transmission Date: 20170207
  Serious: Yes (Other)
  Sender: FDA-Public Use
  Company Number: US-BAUSCH-BL-2016-024283

PATIENT
  Sex: Female

DRUGS (3)
  1. CARAC [Suspect]
     Active Substance: FLUOROURACIL
     Indication: BOWEN^S DISEASE
     Route: 061
     Dates: start: 2014, end: 201609
  2. FLUOROURACIL CREAM 0.5% [Suspect]
     Active Substance: FLUOROURACIL
     Indication: BOWEN^S DISEASE
     Route: 061
     Dates: start: 2014, end: 201609
  3. GAMMA GLOBULIN [Concomitant]
     Active Substance: IMMUNE GLOBULIN NOS
     Indication: PRODUCT USED FOR UNKNOWN INDICATION
     Route: 042
     Dates: start: 2001

REACTIONS (6)
  - Mental impairment [Recovering/Resolving]
  - Nasopharyngitis [Not Recovered/Not Resolved]
  - Off label use [Unknown]
  - Disease recurrence [Unknown]
  - Bowen^s disease [None]
  - Product substitution issue [Unknown]

NARRATIVE: CASE EVENT DATE: 2014
